FAERS Safety Report 24194621 (Version 1)
Quarter: 2024Q3

REPORT INFORMATION
  Report Type: Spontaneous
  Country: DE (occurrence: DE)
  Receive Date: 20240809
  Receipt Date: 20240809
  Transmission Date: 20241017
  Serious: Yes (Other)
  Sender: TEVA
  Company Number: None

PATIENT
  Age: 63 Year
  Sex: Female
  Weight: 62 kg

DRUGS (1)
  1. RAMIPRIL [Suspect]
     Active Substance: RAMIPRIL
     Indication: Blood pressure increased
     Dosage: 2X 1,25MG?RAMIPRIL , ABZ
     Route: 048
     Dates: start: 2012, end: 20240712

REACTIONS (12)
  - Arrhythmia [Recovered/Resolved]
  - Arthralgia [Recovered/Resolved]
  - Ocular discomfort [Recovered/Resolved]
  - Weight bearing difficulty [Recovered/Resolved]
  - Myalgia [Recovered/Resolved]
  - Ear discomfort [Recovered/Resolved]
  - Muscle spasms [Recovered/Resolved]
  - Dizziness [Recovered/Resolved]
  - Neuralgia [Recovered/Resolved]
  - Product physical issue [Unknown]
  - Asthenia [Recovered/Resolved]
  - Pain [Recovered/Resolved]

NARRATIVE: CASE EVENT DATE: 20210601
